FAERS Safety Report 5996264-3 (Version None)
Quarter: 2008Q4

REPORT INFORMATION
  Report Type: 
  Country: None (occurrence: None)
  Receive Date: 20081212
  Receipt Date: 20081014
  Transmission Date: 20090506
  Serious: No
  Sender: FDA-Public Use
  Company Number: US-ABBOTT-08P-163-0481640-00

PATIENT
  Sex: Female
  Weight: 59.02 kg

DRUGS (12)
  1. HUMIRA [Suspect]
     Indication: JUVENILE ARTHRITIS
     Route: 058
     Dates: start: 20080801, end: 20080901
  2. HUMIRA [Suspect]
     Route: 058
     Dates: start: 20080901
  3. LEVOTHYROXINE SODIUM [Concomitant]
     Indication: AUTOIMMUNE THYROIDITIS
     Route: 048
  4. LANSOPRAZOLE [Concomitant]
     Indication: GASTROOESOPHAGEAL REFLUX DISEASE
     Route: 048
  5. SERTRALINE [Concomitant]
     Indication: ANXIETY
     Route: 048
  6. SULFASALAZINE [Concomitant]
     Indication: JUVENILE ARTHRITIS
     Route: 048
  7. FOLIC ACID [Concomitant]
     Indication: JUVENILE ARTHRITIS
     Route: 048
  8. FEXOFENADINE [Concomitant]
     Indication: HYPERSENSITIVITY
     Route: 048
  9. SERETIDE [Concomitant]
     Indication: ASTHMA
     Dosage: 250/100
     Route: 055
  10. DOCUSATE SODIUM [Concomitant]
     Indication: CONSTIPATION
     Route: 048
  11. OLOPATADINE HYDROCHLORIDE [Concomitant]
     Indication: EYE IRRITATION
     Route: 047
  12. ALBUTEROL SULFATE [Concomitant]
     Indication: ASTHMA
     Route: 055

REACTIONS (4)
  - INCORRECT DOSE ADMINISTERED [None]
  - NASOPHARYNGITIS [None]
  - PYREXIA [None]
  - WRONG TECHNIQUE IN DRUG USAGE PROCESS [None]
